FAERS Safety Report 8085631-2 (Version None)
Quarter: 2012Q1

REPORT INFORMATION
  Report Type: 
  Country: None (occurrence: None)
  Receive Date: 20120128
  Receipt Date: 20110604
  Transmission Date: 20120608
  Serious: No
  Sender: FDA-Public Use
  Company Number: US-ABBOTT-11P-163-0716360-00

PATIENT
  Age: 45 Year
  Sex: Female

DRUGS (4)
  1. HUMIRA [Suspect]
     Indication: RHEUMATOID ARTHRITIS
     Dates: start: 20110301, end: 20110330
  2. IMITREX [Concomitant]
     Indication: MIGRAINE
  3. MOTRIN [Concomitant]
     Indication: PRODUCT USED FOR UNKNOWN INDICATION
  4. MULTI-VITAMIN [Concomitant]
     Indication: PRODUCT USED FOR UNKNOWN INDICATION

REACTIONS (10)
  - OROPHARYNGEAL PAIN [None]
  - JOINT SWELLING [None]
  - INCREASED UPPER AIRWAY SECRETION [None]
  - NASOPHARYNGITIS [None]
  - OSTEOMYELITIS [None]
  - PRODUCTIVE COUGH [None]
  - ARTHRITIS [None]
  - JOINT STIFFNESS [None]
  - RHINORRHOEA [None]
  - MUSCULOSKELETAL PAIN [None]
